FAERS Safety Report 11587731 (Version 1)
Quarter: 2015Q4

REPORT INFORMATION
  Report Type: Spontaneous
  Country: US (occurrence: US)
  Receive Date: 20151001
  Receipt Date: 20151001
  Transmission Date: 20160304
  Serious: Yes (Hospitalization, Other)
  Sender: FDA-Public Use
  Company Number: US-GLAXOSMITHKLINE-US2015GSK140508

PATIENT
  Age: 58 Year
  Sex: Male

DRUGS (6)
  1. BASILIXIMAB [Concomitant]
     Active Substance: BASILIXIMAB
  2. METHYLPREDNISOLONE. [Concomitant]
     Active Substance: METHYLPREDNISOLONE
  3. LAMIVUDINE. [Suspect]
     Active Substance: LAMIVUDINE
     Indication: HEPATITIS B ANTIBODY
     Dosage: 150 MG, 1D
  4. HEPATITIS B IMMUNE GLOBULIN [Concomitant]
     Active Substance: HUMAN HEPATITIS B VIRUS IMMUNE GLOBULIN
  5. MYCOPHENOLATE [Concomitant]
     Active Substance: MYCOPHENOLIC ACID
  6. TACROLIMUS. [Concomitant]
     Active Substance: TACROLIMUS

REACTIONS (11)
  - Fluid overload [Recovered/Resolved]
  - Pleural effusion [Recovered/Resolved]
  - Respiratory failure [Recovered/Resolved]
  - Asthenia [Recovered/Resolved]
  - Hypoventilation [Recovered/Resolved]
  - Oedema peripheral [Recovered/Resolved]
  - Toxicity to various agents [Recovered/Resolved]
  - Dyspnoea [Recovered/Resolved]
  - Ascites [Recovered/Resolved]
  - Neuromyopathy [Recovered/Resolved]
  - Muscular weakness [Recovered/Resolved]
